FAERS Safety Report 5832598-0 (Version None)
Quarter: 2008Q3

REPORT INFORMATION
  Report Type: 
  Country: None (occurrence: None)
  Receive Date: 20080730
  Receipt Date: 20080715
  Transmission Date: 20090109
  Serious: Yes (Hospitalization)
  Sender: FDA-Public Use
  Company Number: DSJ-2008-07338

PATIENT
  Age: 73 Year
  Sex: Male
  Weight: 62.6 kg

DRUGS (7)
  1. OLMESARTAN MEDOXOMIL [Suspect]
     Indication: ESSENTIAL HYPERTENSION
     Dosage: 20 MG (20 MG, 1 IN 1 D), PER ORAL
     Route: 048
     Dates: start: 20070329, end: 20070409
  2. CALBLOCK (AZELNIDIPINE) (AZELNIDIPINE) [Concomitant]
  3. METFORMIN HYDROCHLORIDE [Concomitant]
  4. AMARYL [Concomitant]
  5. MEXITIL (MEXILETINE HYDROCHLORIDE) (MEILETINE HYDROCHLORIDE) [Concomitant]
  6. CASODEX (BICALUTAMIDE) (BICALUTAMIDE) [Concomitant]
  7. NOVORAPID 30MIX (INSULIN ASPART) (INSULIN ASPART) [Concomitant]

REACTIONS (5)
  - BLOOD CHOLESTEROL INCREASED [None]
  - BLOOD PRESSURE INCREASED [None]
  - CEREBRAL INFARCTION [None]
  - VENTRICULAR EXTRASYSTOLES [None]
  - VERTEBRAL ARTERY OCCLUSION [None]
